FAERS Safety Report 5269105-X (Version None)
Quarter: 2007Q1

REPORT INFORMATION
  Report Type: 
  Country: None (occurrence: None)
  Receive Date: 20070319
  Receipt Date: 20070307
  Transmission Date: 20070707
  Serious: Yes (Other)
  Sender: FDA-Public Use
  Company Number: US-KINGPHARMUSA00001-K200700263

PATIENT

DRUGS (2)
  1. ALTACE [Suspect]
     Indication: HYPERTENSION
     Route: 048
  2. ANALGESICS [Concomitant]

REACTIONS (3)
  - HOT FLUSH [None]
  - LOSS OF CONSCIOUSNESS [None]
  - ROAD TRAFFIC ACCIDENT [None]
